FAERS Safety Report 14695005 (Version 1)
Quarter: 2018Q1

REPORT INFORMATION
  Report Type: Report from Study
  Country: CH (occurrence: CH)
  Receive Date: 20180329
  Receipt Date: 20180329
  Transmission Date: 20180509
  Serious: Yes (Other)
  Sender: FDA-Public Use
  Company Number: CH-BAYER-2018-015502

PATIENT
  Age: 43 Year
  Sex: Female
  Weight: 61.1 kg

DRUGS (2)
  1. MIRENA [Suspect]
     Active Substance: LEVONORGESTREL
     Indication: MENORRHAGIA
     Dosage: 20 MCG/24HR, CONT
     Route: 015
     Dates: start: 20171018, end: 20180123
  2. MIRENA [Suspect]
     Active Substance: LEVONORGESTREL
     Indication: MENORRHAGIA

REACTIONS (6)
  - Menometrorrhagia [Recovered/Resolved]
  - Dysmenorrhoea [Recovered/Resolved]
  - Device defective [None]
  - Endometrial thickening [Recovered/Resolved]
  - Device ineffective [None]
  - Wrong technique in device usage process [None]

NARRATIVE: CASE EVENT DATE: 201710
